FAERS Safety Report 7124206-6 (Version None)
Quarter: 2010Q4

REPORT INFORMATION
  Report Type: 
  Country: None (occurrence: None)
  Receive Date: 20101126
  Receipt Date: 20101116
  Transmission Date: 20110411
  Serious: Yes (Hospitalization, Other)
  Sender: FDA-Public Use
  Company Number: PHHY2010AU54264

PATIENT
  Sex: Female

DRUGS (6)
  1. ACLASTA [Suspect]
     Indication: OSTEOPOROSIS
     Dosage: 5 MG
     Route: 042
     Dates: start: 20090924
  2. WARFARIN [Concomitant]
     Route: 048
  3. CAPTOPRIL [Concomitant]
     Route: 048
  4. ALDOSTOR [Concomitant]
  5. DLATENE [Concomitant]
  6. VYTORIN [Concomitant]
     Route: 048

REACTIONS (3)
  - IMMOBILE [None]
  - MUSCULOSKELETAL PAIN [None]
  - NECK PAIN [None]
